FAERS Safety Report 19265883 (Version 1)
Quarter: 2021Q2

REPORT INFORMATION
  Report Type: Spontaneous
  Country: ES (occurrence: ES)
  Receive Date: 20210517
  Receipt Date: 20210517
  Transmission Date: 20210717
  Serious: Yes (Life-Threatening, Hospitalization)
  Sender: FDA-Public Use
  Company Number: ES-TEVA-2021-ES-1911345

PATIENT
  Age: 41 Year
  Sex: Male

DRUGS (6)
  1. CLOTIAPINA (678A) [Interacting]
     Active Substance: CLOTHIAPINE
     Indication: SUICIDE ATTEMPT
     Dosage: 1040 MG
     Route: 048
     Dates: start: 20210405, end: 20210405
  2. GABAPENTINA (2641A) [Interacting]
     Active Substance: GABAPENTIN
     Indication: SUICIDE ATTEMPT
     Dosage: 4800 MG
     Route: 048
     Dates: start: 20210405, end: 20210405
  3. ATOMOXETINA HIDROCLORURO (2974CH) [Interacting]
     Active Substance: ATOMOXETINE HYDROCHLORIDE
     Indication: SUICIDE ATTEMPT
     Dosage: 960 MG
     Route: 048
     Dates: start: 20210405, end: 20210405
  4. RIVOTRIL [Interacting]
     Active Substance: CLONAZEPAM
     Indication: SUICIDE ATTEMPT
     Dosage: 15 MG
     Route: 048
     Dates: start: 20210405, end: 20210405
  5. DIAZEPAM (730A) [Interacting]
     Active Substance: DIAZEPAM
     Indication: SUICIDE ATTEMPT
     Dosage: 60 MG
     Route: 048
     Dates: start: 20210405, end: 20210405
  6. OLANZAPINA (2770A) [Suspect]
     Active Substance: OLANZAPINE
     Indication: SUICIDE ATTEMPT
     Dosage: 140 MG
     Route: 048
     Dates: start: 20210405, end: 20210405

REACTIONS (2)
  - Depressed level of consciousness [Recovered/Resolved]
  - Drug interaction [Unknown]

NARRATIVE: CASE EVENT DATE: 20210405
